FAERS Safety Report 4761458-1 (Version None)
Quarter: 2005Q3

REPORT INFORMATION
  Report Type: 
  Country: None (occurrence: None)
  Receive Date: 20050830
  Receipt Date: 20050408
  Transmission Date: 20060218
  Serious: Yes (Other)
  Sender: FDA-Public Use
  Company Number: US_0502112004

PATIENT
  Sex: Female
  Weight: 50 kg

DRUGS (3)
  1. ZYPREXA [Suspect]
     Indication: DEPRESSION
     Dates: start: 19991201, end: 20031201
  2. SYMBYAX [Suspect]
  3. CELEXA [Concomitant]

REACTIONS (2)
  - PANCREATITIS [None]
  - THIRST [None]
